FAERS Safety Report 9178529 (Version 1)
Quarter: 2013Q1

REPORT INFORMATION
  Report Type: Spontaneous
  Country: US (occurrence: US)
  Receive Date: 20130321
  Receipt Date: 20130321
  Transmission Date: 20140127
  Serious: No
  Sender: FDA-Public Use
  Company Number: US-TEVA-393021USA

PATIENT
  Age: 80 Year
  Sex: Female
  Weight: 72.64 kg

DRUGS (4)
  1. QNASL [Suspect]
     Dosage: 80 MICROGRAM DAILY;
     Route: 045
     Dates: start: 201302
  2. AVAPRO [Concomitant]
  3. LIPITOR [Concomitant]
  4. ALAVERT [Concomitant]

REACTIONS (1)
  - Swelling face [Not Recovered/Not Resolved]
